FAERS Safety Report 6695977-8 (Version None)
Quarter: 2010Q2

REPORT INFORMATION
  Report Type: 
  Country: None (occurrence: None)
  Receive Date: 20100426
  Receipt Date: 20100416
  Transmission Date: 20101027
  Serious: Yes (Hospitalization)
  Sender: FDA-Public Use
  Company Number: FR-KINGPHARMUSA00001-K201000457

PATIENT
  Age: 54 Year
  Sex: Male

DRUGS (16)
  1. ALTACE [Suspect]
     Dosage: UNK
     Route: 048
     Dates: end: 20090401
  2. ALTACE [Suspect]
     Dosage: UNK
     Route: 048
     Dates: start: 20100302
  3. ATACAND [Suspect]
     Dosage: UNK
     Route: 048
     Dates: start: 20090404
  4. DIGOXIN [Suspect]
  5. VASTEN [Concomitant]
     Dosage: UNK
     Dates: end: 20100305
  6. LYRICA [Concomitant]
     Dosage: UNK
     Dates: end: 20100305
  7. KAYEXALATE [Concomitant]
     Dosage: UNK
     Dates: start: 20090401, end: 20100301
  8. ACEBUTOLOL [Concomitant]
     Dosage: UNK
     Dates: end: 20100305
  9. FONZYLANE [Concomitant]
  10. HYPERIUM [Concomitant]
  11. RIVOTRIL [Concomitant]
     Dosage: UNK
     Dates: end: 20100305
  12. KARDEGIC [Concomitant]
  13. NOVONORM [Concomitant]
  14. PLAVIX [Concomitant]
  15. AMLOR [Concomitant]
  16. ACETAMINOPHEN WITH PROPOXYPHENE HCL TAB [Concomitant]
     Dosage: UNK
     Dates: end: 20100305

REACTIONS (5)
  - HYPOKALAEMIA [None]
  - RENAL FAILURE [None]
  - RHABDOMYOLYSIS [None]
  - THERAPEUTIC AGENT TOXICITY [None]
  - THROMBOCYTOPENIA [None]
